FAERS Safety Report 15695192 (Version 1)
Quarter: 2018Q4

REPORT INFORMATION
  Report Type: Spontaneous
  Country: US (occurrence: US)
  Receive Date: 20181206
  Receipt Date: 20181206
  Transmission Date: 20190205
  Serious: Yes (Other)
  Sender: FDA-Public Use
  Company Number: US-ENDO PHARMACEUTICALS INC-2018-040209

PATIENT
  Age: 57 Year
  Sex: Male

DRUGS (1)
  1. XIAFLEX [Suspect]
     Active Substance: COLLAGENASE CLOSTRIDIUM HISTOLYTICUM
     Indication: PEYRONIE^S DISEASE
     Dosage: UNK MG, FIRST INJECTION OF UNKNOWN CYCLE
     Route: 026
     Dates: start: 20180612

REACTIONS (3)
  - Penile haematoma [Recovering/Resolving]
  - Haematoma evacuation [Recovered/Resolved]
  - Penile swelling [Recovering/Resolving]

NARRATIVE: CASE EVENT DATE: 20180614
